FAERS Safety Report 13540546 (Version 1)
Quarter: 2017Q2

REPORT INFORMATION
  Report Type: Spontaneous
  Country: GB (occurrence: GB)
  Receive Date: 20170512
  Receipt Date: 20170512
  Transmission Date: 20170830
  Serious: Yes (Other)
  Sender: FDA-Public Use
  Company Number: GB-PFIZER INC-2017205383

PATIENT
  Age: 83 Year
  Sex: Female
  Weight: 95.25 kg

DRUGS (7)
  1. VITAMIN B COMPLEX [Concomitant]
     Active Substance: CYANOCOBALAMIN\DEXPANTHENOL\NIACINAMIDE\PYRIDOXINE HYDROCHLORIDE\RIBOFLAVIN 5^-PHOSPHATE SODIUM\THIAMINE HYDROCHLORIDE\VITAMIN B COMPLEX
  2. AMITRIPTYLINE [Concomitant]
     Active Substance: AMITRIPTYLINE
     Indication: PAIN
  3. COD LIVER OIL [Concomitant]
     Active Substance: COD LIVER OIL
  4. DOXYCYCLINE MONOHYDRATE [Suspect]
     Active Substance: DOXYCYCLINE
     Indication: ACUTE GRAFT VERSUS HOST DISEASE
     Dosage: TWO THEN ONE DAILY
     Route: 048
     Dates: start: 20170419, end: 20170423
  5. LOSARTAN. [Concomitant]
     Active Substance: LOSARTAN
     Dosage: UNK
  6. TRAMADOL. [Concomitant]
     Active Substance: TRAMADOL
     Indication: PAIN
  7. METRONIDAZOLE BENZOATE [Suspect]
     Active Substance: METRONIDAZOLE BENZOATE
     Indication: DIVERTICULITIS
     Dosage: 1 DF, 3X/DAY
     Route: 048
     Dates: start: 20170420, end: 20170422

REACTIONS (10)
  - Joint swelling [Recovered/Resolved with Sequelae]
  - Tongue erythema [Recovering/Resolving]
  - Erythema [Recovering/Resolving]
  - Dysgeusia [Unknown]
  - Dysuria [Recovering/Resolving]
  - Hyperhidrosis [Unknown]
  - Pain [Recovering/Resolving]
  - Swollen tongue [Recovering/Resolving]
  - Peripheral swelling [Recovering/Resolving]
  - Decreased appetite [Unknown]

NARRATIVE: CASE EVENT DATE: 20170420
